FAERS Safety Report 25363412 (Version 1)
Quarter: 2025Q2

REPORT INFORMATION
  Report Type: Spontaneous
  Country: US (occurrence: None)
  Receive Date: 20250526
  Receipt Date: 20250526
  Transmission Date: 20250717
  Serious: Yes (Life-Threatening, Hospitalization, Disabling)
  Sender: FDA-CTU
  Company Number: None

PATIENT
  Age: 25 Year
  Sex: Female
  Weight: 49.5 kg

DRUGS (7)
  1. TRIAMCINOLONE [Suspect]
     Active Substance: TRIAMCINOLONE
  2. PREDNISONE [Suspect]
     Active Substance: PREDNISONE
  3. CLOBETASOL [Suspect]
     Active Substance: CLOBETASOL
  4. FLUOCINONIDE [Suspect]
     Active Substance: FLUOCINONIDE
  5. HYDROCORTISONE [Suspect]
     Active Substance: HYDROCORTISONE
  6. VITAMIN B [Concomitant]
     Active Substance: VITAMIN B
  7. IRON [Concomitant]
     Active Substance: IRON

REACTIONS (7)
  - Drug ineffective [None]
  - Erythema [None]
  - Skin exfoliation [None]
  - Skin weeping [None]
  - Nervous system disorder [None]
  - Hot flush [None]
  - Insomnia [None]

NARRATIVE: CASE EVENT DATE: 20240801
